FAERS Safety Report 5662513-4 (Version None)
Quarter: 2008Q1

REPORT INFORMATION
  Report Type: 
  Country: None (occurrence: None)
  Receive Date: 20080313
  Receipt Date: 20080304
  Transmission Date: 20080703
  Serious: Yes (Other)
  Sender: FDA-Public Use
  Company Number: US-JNJFOC-20080301232

PATIENT
  Sex: Female
  Weight: 57.15 kg

DRUGS (4)
  1. TOPAMAX [Suspect]
     Indication: MIGRAINE PROPHYLAXIS
     Route: 048
  2. VALTREX [Concomitant]
     Indication: DRUG USE FOR UNKNOWN INDICATION
  3. ORTHO TRI-CYCLEN [Concomitant]
     Indication: CONTRACEPTION
  4. VALIUM [Concomitant]
     Indication: BACK PAIN

REACTIONS (3)
  - APHASIA [None]
  - BALANCE DISORDER [None]
  - DYSGEUSIA [None]
